FAERS Safety Report 5622212-1 (Version None)
Quarter: 2008Q1

REPORT INFORMATION
  Report Type: 
  Country: None (occurrence: None)
  Receive Date: 20080211
  Receipt Date: 20080207
  Transmission Date: 20080703
  Serious: Yes (Death)
  Sender: FDA-Public Use
  Company Number: JP-SANOFI-SYNTHELABO-F01200800145

PATIENT
  Sex: Male

DRUGS (4)
  1. CALCIUM LEVOFOLINATE [Suspect]
     Route: 042
     Dates: start: 20080109, end: 20080109
  2. FLUOROURACIL [Suspect]
     Route: 042
     Dates: start: 20080109, end: 20080111
  3. BEVACIZUMAB [Suspect]
     Route: 042
     Dates: start: 20080109, end: 20080109
  4. OXALIPLATIN [Suspect]
     Indication: RECTAL CANCER RECURRENT
     Route: 042
     Dates: start: 20071212, end: 20071212

REACTIONS (1)
  - AORTIC ANEURYSM RUPTURE [None]
